FAERS Safety Report 10963155 (Version 1)
Quarter: 2015Q1

REPORT INFORMATION
  Report Type: Spontaneous
  Country: US (occurrence: US)
  Receive Date: 20150205
  Receipt Date: 20150205
  Transmission Date: 20150721
  Serious: Yes (Death, Hospitalization)
  Sender: FDA-Public Use
  Company Number: US-APOTEX-2015AP006132

PATIENT
  Age: 60 Year
  Sex: Male

DRUGS (5)
  1. TIZANIDINE (TIZANIDINE) [Suspect]
     Active Substance: TIZANIDINE
  2. TRAMADOL HYDROCHLORIDE. [Suspect]
     Active Substance: TRAMADOL HYDROCHLORIDE
  3. IBUPROFEN. [Suspect]
     Active Substance: IBUPROFEN
  4. OXAZEPAM. [Suspect]
     Active Substance: OXAZEPAM
  5. CLONAZEPAM TABLETS USP [Suspect]
     Active Substance: CLONAZEPAM

REACTIONS (1)
  - Completed suicide [Fatal]
